FAERS Safety Report 21474742 (Version 1)
Quarter: 2022Q4

REPORT INFORMATION
  Report Type: Report from Study
  Country: US (occurrence: US)
  Receive Date: 20221018
  Receipt Date: 20221018
  Transmission Date: 20230113
  Serious: Yes (Other)
  Sender: FDA-Public Use
  Company Number: US-ABBVIE-4163093

PATIENT
  Sex: Female

DRUGS (11)
  1. RINVOQ [Suspect]
     Active Substance: UPADACITINIB
     Indication: Rheumatoid arthritis
     Dosage: FORM STRENGTH: 15 MILLIGRAM
     Route: 048
  2. LEFLUNOMIDE [Concomitant]
     Active Substance: LEFLUNOMIDE
     Indication: Product used for unknown indication
     Dosage: FORM STRENGTH: 20 MG
     Route: 048
  3. NOVOLIN N FL SUP [Concomitant]
     Indication: Product used for unknown indication
     Dosage: FORM STRENGTH: 100 MG
  4. ALBUTEROL SU AER 108 (90 [Concomitant]
     Indication: Product used for unknown indication
  5. SPIRONOLACTO [Concomitant]
     Indication: Product used for unknown indication
     Dosage: FORM STRENGTH: 25 MG
     Route: 048
  6. POTASSIUM CH TBC [Concomitant]
     Indication: Product used for unknown indication
     Dosage: 10MEQ
  7. ZENPEP CPE [Concomitant]
     Indication: Product used for unknown indication
     Dosage: 20000-63UNIT
  8. FOLIC ACID [Concomitant]
     Active Substance: FOLIC ACID
     Indication: Product used for unknown indication
     Dosage: FORM STRENGTH: 1 MG
     Route: 048
  9. HYDROMORPHONE [Concomitant]
     Active Substance: HYDROMORPHONE
     Indication: Product used for unknown indication
     Dosage: FORM STRENGTH: 2 MG
     Route: 048
  10. HUMIRA [Concomitant]
     Active Substance: ADALIMUMAB
     Indication: Product used for unknown indication
     Route: 058
  11. FUROSEMIDE [Concomitant]
     Active Substance: FUROSEMIDE
     Indication: Product used for unknown indication
     Dosage: FORM STRENGTH: 40 MG
     Route: 048

REACTIONS (2)
  - Elbow operation [Unknown]
  - Infection [Unknown]
